FAERS Safety Report 9735633 (Version 5)
Quarter: 2014Q2

REPORT INFORMATION
  Report Type: Report from Study
  Country: US (occurrence: US)
  Receive Date: 20131206
  Receipt Date: 20140522
  Transmission Date: 20141212
  Serious: Yes (Other)
  Sender: FDA-Public Use
  Company Number: PHEH2013US024048

PATIENT
  Sex: Female

DRUGS (3)
  1. GLEEVEC [Suspect]
     Indication: LUNG NEOPLASM MALIGNANT
     Dosage: UNK UKN, DAILY
     Route: 048
     Dates: start: 20130731
  2. GLEEVEC [Suspect]
     Indication: BRONCHIAL CARCINOMA
     Dosage: 400 MG, QD
     Route: 048
  3. CLOBETASOL [Concomitant]
     Dosage: UNK UKN, UNK

REACTIONS (10)
  - Fibromatosis [Unknown]
  - Anosmia [Unknown]
  - Ageusia [Unknown]
  - Eye infection [Unknown]
  - Ear infection [Unknown]
  - Fatigue [Unknown]
  - Diarrhoea [Unknown]
  - Alopecia [Unknown]
  - Depression [Unknown]
  - Drug ineffective [Unknown]
